FAERS Safety Report 8355920-2 (Version None)
Quarter: 2012Q2

REPORT INFORMATION
  Report Type: 
  Country: None (occurrence: None)
  Receive Date: 20120511
  Receipt Date: 20120511
  Transmission Date: 20120825
  Serious: Yes (Hospitalization)
  Sender: FDA-Public Use
  Company Number: None

PATIENT
  Age: 49 Year
  Sex: Female
  Weight: 79.2 kg

DRUGS (1)
  1. ABRAXANE [Suspect]

REACTIONS (8)
  - METASTASES TO CENTRAL NERVOUS SYSTEM [None]
  - GRAND MAL CONVULSION [None]
  - UNRESPONSIVE TO STIMULI [None]
  - DISEASE PROGRESSION [None]
  - CONVULSION [None]
  - MOVEMENT DISORDER [None]
  - DYSKINESIA [None]
  - PLATELET COUNT DECREASED [None]
